FAERS Safety Report 24053062 (Version 1)
Quarter: 2024Q3

REPORT INFORMATION
  Report Type: Spontaneous
  Country: US (occurrence: US)
  Receive Date: 20240705
  Receipt Date: 20240705
  Transmission Date: 20241017
  Serious: Yes (Hospitalization, Other)
  Sender: AUROBINDO
  Company Number: US-MLMSERVICE-20240619-PI104961-00030-1

PATIENT
  Age: 18 Year
  Sex: Male

DRUGS (1)
  1. IBUPROFEN [Suspect]
     Active Substance: IBUPROFEN
     Indication: Upper respiratory tract infection
     Dosage: OVER-THE-COUNTER IBUPROFEN AT MANUFACTURER-RECOMMENDED DOSES (400-600 MG EVERY SIX TO EIGHT HOURS)
     Route: 065

REACTIONS (4)
  - Dieulafoy^s vascular malformation [Recovered/Resolved]
  - Syncope [Recovered/Resolved]
  - Haemoglobin decreased [Recovered/Resolved]
  - Gastric mucosal lesion [Recovered/Resolved]
